FAERS Safety Report 5344148-6 (Version None)
Quarter: 2007Q2

REPORT INFORMATION
  Report Type: 
  Country: None (occurrence: None)
  Receive Date: 20070604
  Receipt Date: 20070531
  Transmission Date: 20071010
  Serious: Yes (Death, Hospitalization)
  Sender: FDA-Public Use
  Company Number: US-SANOFI-SYNTHELABO-F01200700662

PATIENT
  Sex: Male

DRUGS (22)
  1. UNKNOWN DRUG [Concomitant]
     Dates: start: 20070404, end: 20070418
  2. FLAGYL [Concomitant]
     Dates: start: 20070404, end: 20070412
  3. IMODIUM [Concomitant]
     Dates: start: 20070404, end: 20070407
  4. EMLA [Concomitant]
     Dates: start: 20070316, end: 20070329
  5. COMPAZINE [Concomitant]
     Dates: start: 20070316, end: 20070404
  6. ATIVAN [Concomitant]
     Dates: start: 20070316, end: 20070316
  7. ZOFRAN [Concomitant]
     Dates: start: 20070316, end: 20070329
  8. DECADRON [Concomitant]
     Dates: start: 20070316, end: 20070329
  9. PEPCID AC [Concomitant]
     Dates: start: 20020615, end: 20070404
  10. LOTREL [Concomitant]
     Dates: start: 20020615, end: 20070404
  11. ZOCOR [Concomitant]
     Dates: start: 20020615, end: 20070404
  12. METOPROLOL SUCCINATE [Concomitant]
     Dates: start: 20000615, end: 20070404
  13. TUMS [Concomitant]
     Dates: start: 20000615, end: 20070404
  14. METAMUCIL [Concomitant]
     Dates: start: 20000615, end: 20070404
  15. SAW PALMETTO [Concomitant]
     Dates: start: 19940615, end: 20070404
  16. LECITHIN [Concomitant]
     Dates: start: 20000615, end: 20070404
  17. GLUCOSAMINE [Concomitant]
     Dates: start: 20000615, end: 20070404
  18. MULTI-VITAMIN [Concomitant]
     Dates: start: 20000615, end: 20070404
  19. ASPIRIN [Concomitant]
     Dates: start: 20070305, end: 20070420
  20. CAPECITABINE [Suspect]
     Dosage: DAYS 1-8 EVERY 14 DAYS 6000 MG
     Route: 048
     Dates: end: 20070331
  21. BEVACIZUMAB [Suspect]
     Route: 041
     Dates: start: 20070329, end: 20070329
  22. OXALIPLATIN [Suspect]
     Indication: COLORECTAL CANCER METASTATIC
     Route: 041
     Dates: start: 20070329, end: 20070329

REACTIONS (2)
  - MUCOSAL INFLAMMATION [None]
  - MULTI-ORGAN FAILURE [None]
